FAERS Safety Report 5523800-3 (Version None)
Quarter: 2007Q4

REPORT INFORMATION
  Report Type: 
  Country: None (occurrence: None)
  Receive Date: 20071119
  Receipt Date: 20071105
  Transmission Date: 20080405
  Serious: Yes (Death, Hospitalization)
  Sender: FDA-Public Use
  Company Number: 2007P1000688

PATIENT
  Age: 4 Year
  Sex: Male

DRUGS (10)
  1. BUSULFAN (BUSULFAN) [Suspect]
     Indication: STEM CELL TRANSPLANT
     Dosage: 9.63 ML; QD; IV, 12.84 ML; QD; IV, 3.21 ML; QD; IV
     Route: 042
     Dates: start: 20070108, end: 20070108
  2. BUSULFAN (BUSULFAN) [Suspect]
     Indication: STEM CELL TRANSPLANT
     Dosage: 9.63 ML; QD; IV, 12.84 ML; QD; IV, 3.21 ML; QD; IV
     Route: 042
     Dates: start: 20070109, end: 20070111
  3. BUSULFAN (BUSULFAN) [Suspect]
     Indication: STEM CELL TRANSPLANT
     Dosage: 9.63 ML; QD; IV, 12.84 ML; QD; IV, 3.21 ML; QD; IV
     Route: 042
     Dates: start: 20070112, end: 20070112
  4. CYCLOPHOSPHAMIDE [Suspect]
     Indication: STEM CELL TRANSPLANT
     Dosage: 1060 MG; QD; IV
     Route: 042
     Dates: start: 20070114, end: 20070115
  5. CYTARABINE [Suspect]
     Indication: STEM CELL TRANSPLANT
     Dosage: ; IV
     Route: 042
     Dates: start: 20070112, end: 20070113
  6. CLONAZEPAM [Concomitant]
  7. NEUPOGEN [Concomitant]
  8. NEUPOGEN [Concomitant]
  9. METHOTREXATE [Concomitant]
  10. TACROLIMUS [Concomitant]

REACTIONS (4)
  - ACUTE MYELOID LEUKAEMIA RECURRENT [None]
  - GRAFT VERSUS HOST DISEASE [None]
  - SEPSIS [None]
  - STOMATITIS [None]
